FAERS Safety Report 24410801 (Version 1)
Quarter: 2024Q4

REPORT INFORMATION
  Report Type: Spontaneous
  Country: US (occurrence: US)
  Receive Date: 20241008
  Receipt Date: 20241008
  Transmission Date: 20250115
  Serious: Yes (Death, Hospitalization)
  Sender: MYLAN
  Company Number: US-MYLANLABS-2024M1090799

PATIENT
  Age: 43 Year
  Sex: Female

DRUGS (10)
  1. LINEZOLID [Suspect]
     Active Substance: LINEZOLID
     Indication: Beta haemolytic streptococcal infection
     Dosage: UNK
     Route: 065
  2. LINEZOLID [Suspect]
     Active Substance: LINEZOLID
     Indication: Meningitis streptococcal
  3. CEFTRIAXONE [Suspect]
     Active Substance: CEFTRIAXONE
     Indication: Beta haemolytic streptococcal infection
     Dosage: UNK
     Route: 065
  4. CEFTRIAXONE [Suspect]
     Active Substance: CEFTRIAXONE
     Indication: Meningitis streptococcal
  5. VANCOMYCIN [Concomitant]
     Active Substance: VANCOMYCIN
     Indication: Beta haemolytic streptococcal infection
     Dosage: UNK
     Route: 065
  6. VANCOMYCIN [Concomitant]
     Active Substance: VANCOMYCIN
     Indication: Meningitis streptococcal
  7. AMPICILLIN [Concomitant]
     Active Substance: AMPICILLIN
     Indication: Beta haemolytic streptococcal infection
     Dosage: UNK
     Route: 065
  8. AMPICILLIN [Concomitant]
     Active Substance: AMPICILLIN
     Indication: Meningitis streptococcal
  9. ACYCLOVIR [Concomitant]
     Active Substance: ACYCLOVIR
     Indication: Beta haemolytic streptococcal infection
     Dosage: UNK
     Route: 065
  10. ACYCLOVIR [Concomitant]
     Active Substance: ACYCLOVIR
     Indication: Meningitis streptococcal

REACTIONS (1)
  - Drug ineffective [Fatal]
